FAERS Safety Report 8369206-3 (Version None)
Quarter: 2012Q1

REPORT INFORMATION
  Report Type: 
  Country: None (occurrence: None)
  Receive Date: 20120323
  Receipt Date: 20111010
  Transmission Date: 20120608
  Serious: Yes (Hospitalization, Other)
  Sender: FDA-Public Use
  Company Number: 163-21880-11081873

PATIENT
  Age: 70 Year
  Sex: Female

DRUGS (2)
  1. REVLIMID [Suspect]
     Indication: MULTIPLE MYELOMA
     Dosage: 5 MG, DAILY AFTER DIALYSIS, PO 5 MG, 1 IN 1 D, PO
     Route: 048
     Dates: start: 20110714, end: 20110812
  2. REVLIMID [Suspect]
     Indication: MULTIPLE MYELOMA
     Dosage: 5 MG, DAILY AFTER DIALYSIS, PO 5 MG, 1 IN 1 D, PO
     Route: 048
     Dates: start: 20111001

REACTIONS (3)
  - THROMBOSIS [None]
  - GENERAL PHYSICAL CONDITION ABNORMAL [None]
  - TREMOR [None]
